FAERS Safety Report 7966234-4 (Version None)
Quarter: 2011Q4

REPORT INFORMATION
  Report Type: 
  Country: None (occurrence: None)
  Receive Date: 20111208
  Receipt Date: 20111205
  Transmission Date: 20120403
  Serious: No
  Sender: FDA-Public Use
  Company Number: US-BAYER-2011-117731

PATIENT

DRUGS (2)
  1. ACETAMINOPHEN [Suspect]
  2. ALEVE (CAPLET) [Suspect]

REACTIONS (1)
  - FATIGUE [None]
